FAERS Safety Report 22180422 (Version 1)
Quarter: 2023Q2

REPORT INFORMATION
  Report Type: Spontaneous
  Country: US (occurrence: US)
  Receive Date: 20230406
  Receipt Date: 20230406
  Transmission Date: 20230721
  Serious: Yes (Other)
  Sender: FDA-Public Use
  Company Number: US-PADAGIS-2023PAD00443

PATIENT

DRUGS (1)
  1. TESTOSTERONE CYPIONATE [Suspect]
     Active Substance: TESTOSTERONE CYPIONATE
     Indication: Gender reassignment therapy
     Dosage: UNK
     Route: 065

REACTIONS (2)
  - Coronary artery dissection [Unknown]
  - Product use in unapproved indication [Unknown]
